FAERS Safety Report 10736705 (Version 1)
Quarter: 2015Q1

REPORT INFORMATION
  Report Type: Spontaneous
  Country: US (occurrence: None)
  Receive Date: 20150123
  Receipt Date: 20150123
  Transmission Date: 20150721
  Serious: Yes (Hospitalization)
  Sender: FDA-Public Use
  Company Number: None

PATIENT
  Age: 65 Year
  Sex: Male
  Weight: 50 kg

DRUGS (1)
  1. MORPHINE [Suspect]
     Active Substance: MORPHINE
     Indication: PAIN
     Dates: end: 20141021

REACTIONS (9)
  - Retching [None]
  - Accidental overdose [None]
  - Asthenia [None]
  - Somnolence [None]
  - Vomiting [None]
  - Fatigue [None]
  - Nausea [None]
  - Wrong technique in drug usage process [None]
  - Respiratory acidosis [None]

NARRATIVE: CASE EVENT DATE: 20141021
